FAERS Safety Report 6649156-0 (Version None)
Quarter: 2010Q1

REPORT INFORMATION
  Report Type: 
  Country: None (occurrence: None)
  Receive Date: 20100324
  Receipt Date: 20100317
  Transmission Date: 20100710
  Serious: Yes (Hospitalization)
  Sender: FDA-Public Use
  Company Number: A0850654A

PATIENT
  Age: 50 Year
  Sex: Male

DRUGS (13)
  1. ADVAIR DISKUS 100/50 [Suspect]
     Indication: CHRONIC OBSTRUCTIVE PULMONARY DISEASE
     Dosage: 1PUFF TWICE PER DAY
     Route: 055
     Dates: start: 20010101
  2. ALBUTEROL [Concomitant]
  3. SPIRIVA [Concomitant]
  4. SINGULAIR [Concomitant]
  5. UNKNOWN MEDICATION [Concomitant]
  6. OXYGEN [Concomitant]
  7. CRESTOR [Concomitant]
  8. AVALIDE [Concomitant]
  9. CLONIDINE [Concomitant]
  10. AMLODIPINE [Concomitant]
  11. WELCHOL [Concomitant]
  12. PROAIR HFA [Concomitant]
  13. PREDNISOLONE [Concomitant]

REACTIONS (2)
  - DRUG INEFFECTIVE [None]
  - UPPER RESPIRATORY TRACT INFECTION [None]
